FAERS Safety Report 25127779 (Version 5)
Quarter: 2025Q3

REPORT INFORMATION
  Report Type: Report from Study
  Country: US (occurrence: US)
  Receive Date: 20250327
  Receipt Date: 20250710
  Transmission Date: 20251021
  Serious: Yes (Other)
  Sender: DECIPHERA PHARMACEUTICALS
  Company Number: US-DECIPHERA PHARMACEUTICALS LLC-2025US000203

PATIENT
  Age: 69 Year
  Sex: Female

DRUGS (10)
  1. QINLOCK [Suspect]
     Active Substance: RIPRETINIB
     Indication: Gastrointestinal stromal tumour
     Dosage: 150 MILLIGRAM, QD
     Route: 048
     Dates: start: 20250305
  2. METOPROLOL [Concomitant]
     Active Substance: METOPROLOL
     Indication: Heart valve incompetence
     Dosage: 25 MILLIGRAM, BID
  3. METOPROLOL [Concomitant]
     Active Substance: METOPROLOL
     Indication: Tachycardia
  4. PRAVASTATIN [Concomitant]
     Active Substance: PRAVASTATIN
     Indication: Product used for unknown indication
     Dosage: 80 MILLIGRAM, QD
  5. VITAMIN D2 [Concomitant]
     Active Substance: ERGOCALCIFEROL
     Indication: Product used for unknown indication
     Dosage: 1.25 MILLIGRAM, WEEKLY
  6. HYDROXYCHLOROQUINE [Concomitant]
     Active Substance: HYDROXYCHLOROQUINE
     Indication: Product used for unknown indication
     Dosage: 200 MILLIGRAM, BID
  7. OMEPRAZOLE [Concomitant]
     Active Substance: OMEPRAZOLE
     Indication: Product used for unknown indication
     Dosage: 40 MILLIGRAM, QD
  8. ASPIRIN [Concomitant]
     Active Substance: ASPIRIN
     Indication: Product used for unknown indication
     Dosage: 81 MILLIGRAM, QD
     Route: 048
  9. TRAMADOL [Concomitant]
     Active Substance: TRAMADOL
     Indication: Cancer pain
  10. TRAMADOL [Concomitant]
     Active Substance: TRAMADOL
     Dosage: 50 MILLIGRAM, BID
     Dates: start: 2025

REACTIONS (12)
  - Neuropathy peripheral [Not Recovered/Not Resolved]
  - Chest pain [Not Recovered/Not Resolved]
  - Neuralgia [Recovering/Resolving]
  - Amnesia [Unknown]
  - Hepatic enzyme increased [Recovering/Resolving]
  - Blood pressure increased [Unknown]
  - Headache [Recovered/Resolved]
  - Arthralgia [Not Recovered/Not Resolved]
  - Alopecia [Unknown]
  - Fatigue [Unknown]
  - Diarrhoea [Unknown]
  - Muscle spasms [Not Recovered/Not Resolved]

NARRATIVE: CASE EVENT DATE: 20250101
